FAERS Safety Report 5531366-7 (Version None)
Quarter: 2007Q4

REPORT INFORMATION
  Report Type: 
  Country: None (occurrence: None)
  Receive Date: 20071127
  Receipt Date: 20071113
  Transmission Date: 20080405
  Serious: Yes (Death, Other)
  Sender: FDA-Public Use
  Company Number: 2007AP001300

PATIENT
  Sex: Female

DRUGS (7)
  1. PAROXETINE HCL [Suspect]
     Indication: DEPRESSION
     Dosage: 30 MG; TID PO
     Route: 048
     Dates: start: 20060101, end: 20070915
  2. OLANZAPINE [Suspect]
     Indication: MAJOR DEPRESSION
     Dosage: 5 MG; BID PO
     Route: 048
     Dates: start: 20070913, end: 20070915
  3. ACETYLSALICYLIC ACID SRT [Concomitant]
  4. DIAZEPAM [Concomitant]
  5. GLICLAZIDE (GLICLAZIDE) [Concomitant]
  6. METFORMIN HCL [Concomitant]
  7. MIRTAZAPINE [Concomitant]

REACTIONS (1)
  - PULMONARY EMBOLISM [None]
